FAERS Safety Report 9807131 (Version 3)
Quarter: 2014Q1

REPORT INFORMATION
  Report Type: Spontaneous
  Country: AR (occurrence: AR)
  Receive Date: 20140110
  Receipt Date: 20140313
  Transmission Date: 20141002
  Serious: Yes (Other)
  Sender: FDA-Public Use
  Company Number: AR-AMGEN-ARGSP2014001155

PATIENT
  Age: 66 Year
  Sex: Female

DRUGS (6)
  1. ENBREL [Suspect]
     Indication: RHEUMATOID ARTHRITIS
     Dosage: 50 MG, WEEKLY
     Route: 058
     Dates: start: 20080411, end: 201311
  2. ENBREL [Suspect]
     Dosage: UNK
     Route: 065
  3. LOSARTAN POTASSIUM [Concomitant]
     Indication: HYPERTENSION
     Dosage: 150 MG, 1X/DAY
  4. OMEPRAZOLE [Concomitant]
     Dosage: 40 MG, 1X/DAY
  5. EZETIMIBE [Concomitant]
     Dosage: UNK
  6. ACIFOL                             /00024201/ [Concomitant]
     Dosage: 10 MG, 1X/DAY

REACTIONS (6)
  - Gastrolithiasis [Recovered/Resolved]
  - Red blood cell count decreased [Recovering/Resolving]
  - Pain in extremity [Recovered/Resolved]
  - Arthritis [Recovered/Resolved]
  - Arthralgia [Recovered/Resolved]
  - Finger deformity [Recovered/Resolved]
